FAERS Safety Report 23429637 (Version 3)
Quarter: 2024Q1

REPORT INFORMATION
  Report Type: Spontaneous
  Country: US (occurrence: US)
  Receive Date: 20240122
  Receipt Date: 20240304
  Transmission Date: 20240410
  Serious: Yes (Other)
  Sender: FDA-Public Use
  Company Number: US-PFIZER INC-PV202300160073

PATIENT
  Age: 67 Year
  Sex: Female
  Weight: 58.06 kg

DRUGS (5)
  1. BRAFTOVI [Suspect]
     Active Substance: ENCORAFENIB
     Indication: Neoplasm malignant
     Dosage: 300 MG, DAILY (4 CAPSULES DAILY FOR 28 DAYS)
     Route: 048
  2. BRAFTOVI [Suspect]
     Active Substance: ENCORAFENIB
     Indication: Rectal cancer
     Dosage: 300 MG, 1X/DAY
     Dates: start: 20230707, end: 20231117
  3. BRAFTOVI [Suspect]
     Active Substance: ENCORAFENIB
     Dosage: (75 MG 4 CAPSULES)
     Dates: start: 20230701, end: 20230915
  4. BRAFTOVI [Suspect]
     Active Substance: ENCORAFENIB
     Dosage: 75 MG 2 CAPSULE
     Dates: start: 20240103
  5. ERBITUX [Concomitant]
     Active Substance: CETUXIMAB
     Dosage: UNK
     Dates: start: 20230701

REACTIONS (1)
  - Diplegia [Not Recovered/Not Resolved]

NARRATIVE: CASE EVENT DATE: 20230712
